FAERS Safety Report 7052817-5 (Version None)
Quarter: 2010Q4

REPORT INFORMATION
  Report Type: 
  Country: None (occurrence: None)
  Receive Date: 20101012
  Receipt Date: 20100929
  Transmission Date: 20110411
  Serious: Yes (Other)
  Sender: FDA-Public Use
  Company Number: 2010SP052825

PATIENT

DRUGS (2)
  1. RIBAVIRIN [Suspect]
     Indication: HEPATITIS C
     Dosage: 1200 MG;QD
  2. INTERFERON ALFA 2A (INTERFERON ALFA-2A) [Suspect]
     Indication: HEPATITIS C
     Dosage: 3 MIU;TIW;SC
     Route: 058

REACTIONS (13)
  - ALOPECIA [None]
  - APHTHOUS STOMATITIS [None]
  - CHEILITIS [None]
  - CHLOASMA [None]
  - HAIR COLOUR CHANGES [None]
  - LICHEN PLANUS [None]
  - NAIL PIGMENTATION [None]
  - ONYCHOCLASIS [None]
  - PIGMENTATION DISORDER [None]
  - PRURITUS GENERALISED [None]
  - TRICHOMEGALY [None]
  - UNEVALUABLE EVENT [None]
  - URTICARIA [None]
